FAERS Safety Report 21669875 (Version 1)
Quarter: 2022Q4

REPORT INFORMATION
  Report Type: Spontaneous
  Country: US (occurrence: US)
  Receive Date: 20221201
  Receipt Date: 20221201
  Transmission Date: 20230113
  Serious: No
  Sender: FDA-Public Use
  Company Number: US-GLAXOSMITHKLINE-USCH2022AMR046544

PATIENT

DRUGS (4)
  1. ADVIL [Suspect]
     Active Substance: IBUPROFEN
     Indication: Pain
     Dosage: UNK
     Dates: start: 202211
  2. ADVIL [Suspect]
     Active Substance: IBUPROFEN
     Indication: Chest pain
  3. ADVIL [Suspect]
     Active Substance: IBUPROFEN
     Indication: Axillary pain
  4. SHINGRIX [Suspect]
     Active Substance: RECOMBINANT VARICELLA ZOSTER VIRUS (VZV) GLYCOPROTEIN E
     Indication: Product used for unknown indication
     Dosage: UNK
     Dates: start: 202211

REACTIONS (2)
  - Skin disorder [Unknown]
  - Therapeutic product effect incomplete [Unknown]
